FAERS Safety Report 14588847 (Version 1)
Quarter: 2018Q1

REPORT INFORMATION
  Report Type: Spontaneous
  Country: US (occurrence: US)
  Receive Date: 20180301
  Receipt Date: 20180301
  Transmission Date: 20180509
  Serious: Yes (Other)
  Sender: FDA-Public Use
  Company Number: US-ALLERGAN-1811209US

PATIENT
  Sex: Female

DRUGS (1)
  1. URSO 250 [Suspect]
     Active Substance: URSODIOL
     Indication: CHOLANGITIS
     Dosage: UNK, UNKNOWN
     Route: 065

REACTIONS (2)
  - Oesophageal varices haemorrhage [Unknown]
  - Drug ineffective [Unknown]
